FAERS Safety Report 7332606-4 (Version None)
Quarter: 2011Q1

REPORT INFORMATION
  Report Type: 
  Country: None (occurrence: None)
  Receive Date: 20110304
  Receipt Date: 20110228
  Transmission Date: 20110831
  Serious: Yes (Death, Other)
  Sender: FDA-Public Use
  Company Number: GR-PFIZER INC-2011042625

PATIENT
  Age: 7 Month
  Sex: Male

DRUGS (3)
  1. AMIKACIN [Concomitant]
     Indication: BACTERAEMIA
     Route: 042
  2. PIPERACILLIN AND TAZOBACTAM [Suspect]
     Indication: PSEUDOMONAS INFECTION
     Dosage: UNK
  3. CEFTRIAXONE [Concomitant]
     Indication: BACTERIAL SEPSIS
     Dosage: 2 DF, UNK

REACTIONS (4)
  - BRAIN DEATH [None]
  - SEPSIS [None]
  - SKIN NECROSIS [None]
  - MYDRIASIS [None]
